FAERS Safety Report 7205559-7 (Version None)
Quarter: 2010Q4

REPORT INFORMATION
  Report Type: 
  Country: None (occurrence: None)
  Receive Date: 20101231
  Receipt Date: 20101223
  Transmission Date: 20110411
  Serious: Yes (Other)
  Sender: FDA-Public Use
  Company Number: PHHY2010US88156

PATIENT
  Age: 54 Year
  Sex: Female

DRUGS (10)
  1. TRILEPTAL [Suspect]
     Indication: EPILEPSY
     Dosage: 600 MG, UNK
  2. CYMBALTA [Suspect]
     Indication: EPILEPSY
     Dosage: 60 MG, UNK
  3. LAMICTAL [Suspect]
     Indication: EPILEPSY
     Dosage: 150 MG, BID
  4. TOVIAZ [Suspect]
     Indication: BLADDER DISORDER
     Dosage: 4 MG, UNK
     Route: 048
     Dates: start: 20101201
  5. METOPROLOL [Concomitant]
     Indication: BLOOD PRESSURE ABNORMAL
     Dosage: 50 MG, BID
  6. PREVACID [Concomitant]
     Indication: BLOOD CHOLESTEROL ABNORMAL
     Dosage: 20 MG DAILY
  7. LEVOTHYROXINE [Concomitant]
     Indication: THYROID DISORDER
     Dosage: 5 MG, UNK
  8. OMEPRAZOLE [Concomitant]
     Indication: GASTROINTESTINAL DISORDER
  9. OMEPRAZOLE [Concomitant]
     Indication: GASTROOESOPHAGEAL REFLUX DISEASE
  10. PHENOBARBITAL [Concomitant]
     Dosage: 60 MG, UNK

REACTIONS (2)
  - CHOKING [None]
  - DRY MOUTH [None]
